FAERS Safety Report 5300744-3 (Version None)
Quarter: 2007Q2

REPORT INFORMATION
  Report Type: 
  Country: None (occurrence: None)
  Receive Date: 20070418
  Receipt Date: 20070410
  Transmission Date: 20071010
  Serious: Yes (Hospitalization)
  Sender: FDA-Public Use
  Company Number: DE-BRISTOL-MYERS SQUIBB COMPANY-13750518

PATIENT
  Age: 54 Year
  Sex: Male

DRUGS (7)
  1. ENDOXAN [Suspect]
     Indication: HODGKIN'S DISEASE
     Dates: start: 20050624, end: 20050719
  2. ETOPOSIDE [Suspect]
     Indication: HODGKIN'S DISEASE
     Dates: start: 20050624, end: 20050721
  3. ADRIAMYCIN PFS [Concomitant]
     Indication: HODGKIN'S DISEASE
     Dates: start: 20050624, end: 20051201
  4. VINCRISTINE [Concomitant]
     Indication: HODGKIN'S DISEASE
     Dates: start: 20050624, end: 20051201
  5. BLEOMYCIN [Concomitant]
     Indication: HODGKIN'S DISEASE
     Dates: start: 20050624, end: 20051201
  6. NATULAN [Concomitant]
     Indication: HODGKIN'S DISEASE
     Dates: start: 20050624, end: 20051201
  7. PREDNISOLONE [Concomitant]
     Indication: HODGKIN'S DISEASE
     Dates: start: 20050624, end: 20051201

REACTIONS (3)
  - ANAEMIA [None]
  - LEUKOPENIA [None]
  - PNEUMONIA PRIMARY ATYPICAL [None]
